FAERS Safety Report 17154992 (Version 1)
Quarter: 2019Q4

REPORT INFORMATION
  Report Type: Spontaneous
  Country: US (occurrence: US)
  Receive Date: 20191214
  Receipt Date: 20191214
  Transmission Date: 20200122
  Serious: No
  Sender: FDA-Public Use
  Company Number: US-B.I. PHARMACEUTICALS,INC./RIDGEFIELD-2019-US-119284

PATIENT
  Age: 84 Year
  Sex: Female

DRUGS (1)
  1. SPIRIVA RESPIMAT [Suspect]
     Active Substance: TIOTROPIUM BROMIDE
     Indication: LUNG CARCINOMA CELL TYPE UNSPECIFIED STAGE I
     Dosage: 1.25MCG 2 PUFFS ONCE DAILY
     Route: 065
     Dates: start: 201911

REACTIONS (2)
  - Off label use [Unknown]
  - Cough [Not Recovered/Not Resolved]

NARRATIVE: CASE EVENT DATE: 201911
